FAERS Safety Report 21300752 (Version 1)
Quarter: 2022Q3

REPORT INFORMATION
  Report Type: Spontaneous
  Country: NL (occurrence: NL)
  Receive Date: 20220907
  Receipt Date: 20220907
  Transmission Date: 20221027
  Serious: Yes (Life-Threatening, Hospitalization)
  Sender: FDA-Public Use
  Company Number: None

PATIENT
  Sex: Female
  Weight: 60 kg

DRUGS (1)
  1. PEMBROLIZUMAB [Suspect]
     Active Substance: PEMBROLIZUMAB
     Indication: Adenocarcinoma
     Dosage: 1X PER DAY 125 MG IN SODIUM CHLORIDE 0.9% 100ML IN 30 MINUTES
     Dates: start: 20220615

REACTIONS (1)
  - Type 1 diabetes mellitus [Not Recovered/Not Resolved]
